FAERS Safety Report 6359166-9 (Version None)
Quarter: 2009Q3

REPORT INFORMATION
  Report Type: 
  Country: None (occurrence: None)
  Receive Date: 20090917
  Receipt Date: 20090909
  Transmission Date: 20100115
  Serious: Yes (Other)
  Sender: FDA-Public Use
  Company Number: US-ASTRAZENECA-2009SE12154

PATIENT
  Age: 51 Year
  Sex: Female
  Weight: 117.9 kg

DRUGS (2)
  1. SEROQUEL [Suspect]
     Indication: SLEEP DISORDER
     Route: 048
     Dates: start: 20030101, end: 20070401
  2. WELLBUTRIN [Concomitant]

REACTIONS (9)
  - BIOPSY BREAST [None]
  - BLOOD CHOLESTEROL INCREASED [None]
  - BLOOD TRIGLYCERIDES INCREASED [None]
  - DIABETES MELLITUS [None]
  - DIABETIC COMPLICATION [None]
  - EYE DISORDER [None]
  - FURUNCLE [None]
  - HYPERLIPIDAEMIA [None]
  - OBESITY [None]
